FAERS Safety Report 8593877-X (Version None)
Quarter: 2012Q3

REPORT INFORMATION
  Report Type: 
  Country: None (occurrence: None)
  Receive Date: 20120814
  Receipt Date: 20120730
  Transmission Date: 20120928
  Serious: No
  Sender: FDA-Public Use
  Company Number: US-ASTRAZENECA-2012SE53852

PATIENT
  Age: 54 Year
  Sex: Female
  Weight: 78 kg

DRUGS (17)
  1. MULTI-VITAMIN [Concomitant]
     Indication: MEDICAL DIET
     Route: 048
  2. SEROQUEL [Suspect]
     Route: 048
     Dates: start: 20070101
  3. HALDOL [Concomitant]
     Indication: AFFECTIVE DISORDER
     Route: 048
  4. SEROQUEL [Suspect]
     Indication: BIPOLAR DISORDER
     Route: 048
     Dates: start: 20050101, end: 20070101
  5. ASPIRIN [Concomitant]
     Indication: CARDIOVASCULAR EVENT PROPHYLAXIS
     Route: 048
  6. VITAMIN D [Concomitant]
     Indication: MEDICAL DIET
     Route: 048
  7. FISH OIL [Concomitant]
     Indication: MEDICAL DIET
     Route: 048
  8. CINNAMON [Concomitant]
     Indication: BODY FAT DISORDER
     Route: 048
  9. SEROQUEL [Suspect]
     Route: 048
     Dates: start: 20070101
  10. CALCIUM [Concomitant]
     Indication: BLOOD CALCIUM DECREASED
     Route: 048
  11. SEROQUEL [Suspect]
     Indication: DEPRESSION
     Route: 048
     Dates: start: 20050101, end: 20070101
  12. DEXTROAMPHETAMINE [Concomitant]
     Indication: ILL-DEFINED DISORDER
     Route: 048
     Dates: start: 20050101
  13. STOOL SOFTNER [Concomitant]
  14. FIBER [Concomitant]
     Indication: MEDICAL DIET
  15. SEROQUEL [Suspect]
     Route: 048
     Dates: start: 20070101, end: 20070101
  16. SEROQUEL [Suspect]
     Route: 048
     Dates: start: 20070101, end: 20070101
  17. GLUCOPHAGE [Concomitant]
     Indication: GLUCOSE TOLERANCE IMPAIRED
     Dosage: BID
     Dates: start: 20120712

REACTIONS (11)
  - ADVERSE EVENT [None]
  - PALPITATIONS [None]
  - HYPERGLYCAEMIA [None]
  - BLOOD CALCIUM DECREASED [None]
  - WEIGHT INCREASED [None]
  - DRUG EFFECT DECREASED [None]
  - BLOOD PRESSURE DECREASED [None]
  - BLOOD TRIGLYCERIDES INCREASED [None]
  - SEDATION [None]
  - GLUCOSE TOLERANCE IMPAIRED [None]
  - DYSPNOEA [None]
